FAERS Safety Report 17124284 (Version 1)
Quarter: 2019Q4

REPORT INFORMATION
  Report Type: Report from Study
  Country: IL (occurrence: IL)
  Receive Date: 20191206
  Receipt Date: 20191206
  Transmission Date: 20200122
  Serious: Yes (Other)
  Sender: FDA-Public Use
  Company Number: IL-IPSEN BIOPHARMACEUTICALS, INC.-2019-15584

PATIENT
  Age: 63 Year
  Sex: Female

DRUGS (6)
  1. FASLODEX [Concomitant]
     Active Substance: FULVESTRANT
     Dates: start: 201809
  2. SOMATULINE AUTOGEL [Suspect]
     Active Substance: LANREOTIDE ACETATE
     Indication: NEUROENDOCRINE TUMOUR
     Route: 058
     Dates: start: 20130117
  3. FEMARA [Concomitant]
     Active Substance: LETROZOLE
  4. IBRANCE [Concomitant]
     Active Substance: PALBOCICLIB
     Dosage: FOR 5 DAYS
     Dates: start: 201809, end: 201809
  5. AMLOW [Concomitant]
     Active Substance: AMLODIPINE MALEATE
  6. IBRANCE [Concomitant]
     Active Substance: PALBOCICLIB
     Dosage: 100 MG FOR 3 WEEKS AND THEN A 1 WEEK BREAK
     Dates: start: 201811

REACTIONS (11)
  - Weight increased [Unknown]
  - Metastases to lung [Unknown]
  - Fatigue [Unknown]
  - Disease progression [Unknown]
  - Breast cancer recurrent [Unknown]
  - Metastases to bone [Unknown]
  - Colon cancer [Unknown]
  - Metastases to lymph nodes [Unknown]
  - Calculus urinary [Unknown]
  - Asthenia [Unknown]
  - Injection site pain [Recovered/Resolved]

NARRATIVE: CASE EVENT DATE: 201308
